FAERS Safety Report 6157941-7 (Version None)
Quarter: 2009Q2

REPORT INFORMATION
  Report Type: 
  Country: None (occurrence: None)
  Receive Date: 20090417
  Receipt Date: 20090408
  Transmission Date: 20091009
  Serious: Yes (Other)
  Sender: FDA-Public Use
  Company Number: AU-JNJFOC-20090401569

PATIENT
  Sex: Female
  Weight: 48 kg

DRUGS (4)
  1. CONCERTA [Suspect]
     Indication: ATTENTION DEFICIT/HYPERACTIVITY DISORDER
     Route: 048
  2. EVENING PRIMROSE OIL [Concomitant]
     Indication: NUTRITIONAL SUPPORT
     Route: 065
  3. FISH OIL CAPSULES [Concomitant]
     Indication: NUTRITIONAL SUPPORT
     Route: 065
  4. SWISS TEENACE ULTIVITE [Concomitant]
     Indication: MEDICAL DIET
     Route: 065

REACTIONS (2)
  - ACCOMMODATION DISORDER [None]
  - MIGRAINE WITH AURA [None]
